FAERS Safety Report 24682060 (Version 1)
Quarter: 2024Q4

REPORT INFORMATION
  Report Type: Spontaneous
  Country: US (occurrence: US)
  Receive Date: 20241130
  Receipt Date: 20241130
  Transmission Date: 20250115
  Serious: Yes (Life-Threatening, Hospitalization)
  Sender: MACLEODS
  Company Number: US-MLMSERVICE-20241115-PI258359-00202-1

PATIENT

DRUGS (1)
  1. LINEZOLID [Suspect]
     Active Substance: LINEZOLID
     Indication: Enterococcal infection
     Route: 065

REACTIONS (5)
  - Haemodynamic instability [Unknown]
  - Hypotension [Unknown]
  - Pneumonia [Unknown]
  - Acute kidney injury [Unknown]
  - Lactic acidosis [Unknown]
